FAERS Safety Report 15301403 (Version 1)
Quarter: 2018Q3

REPORT INFORMATION
  Report Type: Report from Study
  Country: FR (occurrence: FR)
  Receive Date: 20180821
  Receipt Date: 20180821
  Transmission Date: 20181010
  Serious: Yes (Death, Hospitalization, Other)
  Sender: FDA-Public Use
  Company Number: FR-ASTELLAS-2018US036988

PATIENT
  Age: 77 Year
  Sex: Male
  Weight: 61 kg

DRUGS (3)
  1. TACROLIMUS. [Suspect]
     Active Substance: TACROLIMUS
     Dosage: 2 (UNIT NOT PROVIDED), ONCE DAILY
     Route: 065
     Dates: start: 20180301, end: 20180329
  2. TACROLIMUS. [Suspect]
     Active Substance: TACROLIMUS
     Dosage: 1 (UNIT NOT PROVIDED), ONCE DAILY
     Route: 065
     Dates: start: 20171117, end: 20180329
  3. TACROLIMUS. [Suspect]
     Active Substance: TACROLIMUS
     Indication: RENAL TRANSPLANT
     Dosage: 3 (UNIT NOT PROVIDED), ONCE DAILY
     Route: 065
     Dates: start: 20170719, end: 20180329

REACTIONS (5)
  - Infectious colitis [Recovered/Resolved]
  - Squamous cell carcinoma [Fatal]
  - Dyspnoea [Recovered/Resolved]
  - Pneumonia [Recovered/Resolved]
  - Sepsis [Fatal]

NARRATIVE: CASE EVENT DATE: 20171018
